FAERS Safety Report 6567294-8 (Version None)
Quarter: 2010Q1

REPORT INFORMATION
  Report Type: 
  Country: None (occurrence: None)
  Receive Date: 20100202
  Receipt Date: 20100120
  Transmission Date: 20100710
  Serious: Yes (Hospitalization, Other)
  Sender: FDA-Public Use
  Company Number: PHEH2009US10263

PATIENT
  Sex: Male

DRUGS (7)
  1. EXJADE [Suspect]
     Indication: BLOOD IRON INCREASED
     Dosage: 250 MG, QD
     Route: 048
     Dates: start: 20090710, end: 20090831
  2. TACROLIMUS [Concomitant]
     Indication: LIVER DISORDER
     Dosage: 0.5 MG, BID
     Route: 048
     Dates: start: 20080621
  3. CLARITIN [Concomitant]
     Indication: HYPERSENSITIVITY
     Dosage: 10 MG/DAY
     Route: 048
     Dates: end: 20090729
  4. MAGNESIUM OXIDE [Concomitant]
     Dosage: 400 MG/DAY
     Route: 048
     Dates: start: 20080709
  5. CREON [Concomitant]
     Dosage: 1 DF, UNK
     Dates: start: 20090521
  6. ALLEGRA [Concomitant]
     Indication: HYPERSENSITIVITY
     Dosage: 30 MG, BID
     Route: 048
     Dates: start: 20090730
  7. IMMUNOSUPPRESSANTS [Concomitant]

REACTIONS (5)
  - BLOOD IRON INCREASED [None]
  - HEPATIC ENZYME INCREASED [None]
  - HEPATIC FIBROSIS [None]
  - SPLENOMEGALY [None]
  - TRANSPLANT REJECTION [None]
